FAERS Safety Report 6573509-2 (Version None)
Quarter: 2010Q1

REPORT INFORMATION
  Report Type: 
  Country: None (occurrence: None)
  Receive Date: 20100208
  Receipt Date: 20100129
  Transmission Date: 20100710
  Serious: Yes (Other)
  Sender: FDA-Public Use
  Company Number: BR-ASTRAZENECA-2010SE04644

PATIENT
  Age: 69 Year
  Sex: Male

DRUGS (4)
  1. ATACAND HCT [Suspect]
     Indication: HYPERTENSION
     Dosage: 16/12.5 MG OD
     Route: 048
     Dates: start: 20090101, end: 20091201
  2. ATACAND [Suspect]
     Indication: HYPERTENSION
     Route: 048
     Dates: start: 20100101
  3. FINASTERIDA [Concomitant]
     Route: 048
     Dates: start: 20080101
  4. BAMIFIX [Concomitant]
     Route: 048
     Dates: start: 20090101

REACTIONS (3)
  - CATARACT [None]
  - EYE DISORDER [None]
  - POLYURIA [None]
